FAERS Safety Report 5024515-0 (Version None)
Quarter: 2006Q2

REPORT INFORMATION
  Report Type: 
  Country: None (occurrence: None)
  Receive Date: 20060607
  Receipt Date: 20060525
  Transmission Date: 20061013
  Serious: Yes (Hospitalization)
  Sender: FDA-Public Use
  Company Number: 2006069438

PATIENT
  Age: 38 Year
  Sex: Male

DRUGS (2)
  1. EPANUTIN SUSPENSION (EPANYTOIN SODIUM) [Suspect]
     Indication: EPILEPSY
     Dosage: 100 MG (100 MG, 1 IN 1 D)
     Dates: start: 20060522, end: 20060522
  2. TEGRETOL [Suspect]
     Indication: EPILEPSY

REACTIONS (4)
  - ABNORMAL BEHAVIOUR [None]
  - DELUSION [None]
  - DRUG INTERACTION [None]
  - FEELING ABNORMAL [None]
